FAERS Safety Report 9243137 (Version 2)
Quarter: 2013Q2

REPORT INFORMATION
  Report Type: Spontaneous
  Country: US (occurrence: US)
  Receive Date: 20130419
  Receipt Date: 20130502
  Transmission Date: 20140414
  Serious: Yes (Other)
  Sender: FDA-Public Use
  Company Number: US-US-EMD SERONO, INC.-7080232

PATIENT
  Sex: Female

DRUGS (1)
  1. REBIF [Suspect]
     Indication: PRODUCT USED FOR UNKNOWN INDICATION
     Route: 058
     Dates: start: 20100331, end: 201109

REACTIONS (6)
  - Uterine haemorrhage [Recovered/Resolved]
  - Infusion site bruising [Unknown]
  - White blood cell count abnormal [Unknown]
  - Liver function test abnormal [Unknown]
  - Injection site pain [Unknown]
  - Injection site reaction [Unknown]
